FAERS Safety Report 14327374 (Version 2)
Quarter: 2018Q1

REPORT INFORMATION
  Report Type: Spontaneous
  Country: US (occurrence: US)
  Receive Date: 20171227
  Receipt Date: 20180313
  Transmission Date: 20180509
  Serious: No
  Sender: FDA-Public Use
  Company Number: US-PFIZER INC-2017463200

PATIENT
  Age: 1 Year
  Sex: Male

DRUGS (1)
  1. EUCRISA [Suspect]
     Active Substance: CRISABOROLE
     Indication: ECZEMA
     Dosage: UNK, APPLY TO AFFECTED AREA 2X/DAY
     Route: 061
     Dates: start: 20171213

REACTIONS (4)
  - Application site pruritus [Unknown]
  - Drug administered to patient of inappropriate age [Unknown]
  - Application site dryness [Unknown]
  - Application site pain [Unknown]

NARRATIVE: CASE EVENT DATE: 201712
